FAERS Safety Report 5730489-7 (Version None)
Quarter: 2008Q2

REPORT INFORMATION
  Report Type: 
  Country: None (occurrence: None)
  Receive Date: 20080507
  Receipt Date: 20080425
  Transmission Date: 20081010
  Serious: Yes (Hospitalization)
  Sender: FDA-Public Use
  Company Number: US-ROCHE-560427

PATIENT
  Sex: Male
  Weight: 85.7 kg

DRUGS (8)
  1. PEGASYS [Suspect]
     Dosage: DOSE BLINDED.
     Route: 058
     Dates: start: 20080305
  2. PEGASYS [Suspect]
     Route: 058
  3. RIBAVIRIN [Suspect]
     Dosage: FREQUENCY: DAILY. DOSE BLINDED FORM: PILL
     Route: 048
     Dates: start: 20080305
  4. GLIPIZIDE [Concomitant]
     Dosage: NAME: GLIPIZIDE XL
     Dates: start: 20060701
  5. METFORMIN HCL [Concomitant]
     Dates: start: 20060701
  6. GEMFIBROZIL [Concomitant]
     Dates: start: 20060101
  7. LEXAPRO [Concomitant]
     Dates: start: 20080201
  8. PROVIGIL [Concomitant]
     Dates: start: 20080305

REACTIONS (2)
  - CALCULUS URETERIC [None]
  - NEPHROLITHIASIS [None]
